FAERS Safety Report 25623614 (Version 3)
Quarter: 2025Q3

REPORT INFORMATION
  Report Type: Spontaneous
  Country: BR (occurrence: BR)
  Receive Date: 20250730
  Receipt Date: 20250820
  Transmission Date: 20251020
  Serious: Yes (Death)
  Sender: CHIESI
  Company Number: BR-CHIESI-2025CHF05155

PATIENT
  Sex: Female

DRUGS (1)
  1. DEFERIPRONE [Suspect]
     Active Substance: DEFERIPRONE
     Indication: Thalassaemia beta

REACTIONS (1)
  - Death [Fatal]
